FAERS Safety Report 8629615 (Version 4)
Quarter: 2012Q4

REPORT INFORMATION
  Report Type: 
  Country: DE (occurrence: DE)
  Receive Date: 20120622
  Receipt Date: 20121011
  Transmission Date: 20130627
  Serious: Yes (Other)
  Sender: FDA-Public Use
  Company Number: DE-RANBAXY-2012RR-57205

PATIENT
  Age: 72 None
  Sex: Male
  Weight: 80 kg

DRUGS (1)
  1. SIMVASTATIN [Suspect]
     Indication: HYPERCHOLESTEROLAEMIA
     Dosage: 20 mg, qd, 0-0-1
     Route: 048
     Dates: start: 20120116, end: 20120514

REACTIONS (1)
  - Musculoskeletal pain [Not Recovered/Not Resolved]
